FAERS Safety Report 9757356 (Version 1)
Quarter: 2013Q4

REPORT INFORMATION
  Report Type: Spontaneous
  Country: US (occurrence: US)
  Receive Date: 20131214
  Receipt Date: 20131214
  Transmission Date: 20140711
  Serious: No
  Sender: FDA-Public Use
  Company Number: US-009507513-1312USA003721

PATIENT
  Age: 45 Year
  Sex: Male

DRUGS (2)
  1. JUVISYNC [Suspect]
     Indication: TYPE 2 DIABETES MELLITUS
     Dosage: 50/10MG DAILY, 7 X 6 MONTHS
     Route: 048
  2. JUVISYNC [Suspect]
     Indication: DYSLIPIDAEMIA

REACTIONS (1)
  - Diarrhoea [Unknown]
